FAERS Safety Report 4880621-2 (Version None)
Quarter: 2006Q1

REPORT INFORMATION
  Report Type: 
  Country: None (occurrence: None)
  Receive Date: 20060113
  Receipt Date: 20051017
  Transmission Date: 20060701
  Serious: Yes (Life-Threatening, Hospitalization, Disabling)
  Sender: FDA-Public Use
  Company Number: CA-MERCK-0510CAN00186

PATIENT
  Sex: Male

DRUGS (7)
  1. ZETIA [Suspect]
     Indication: HYPERCHOLESTEROLAEMIA
     Route: 048
     Dates: end: 20050701
  2. ROSUVASTATIN CALCIUM [Suspect]
     Indication: HYPERCHOLESTEROLAEMIA
     Route: 048
  3. FENOFIBRATE [Suspect]
     Indication: HYPERCHOLESTEROLAEMIA
     Route: 048
     Dates: end: 20050701
  4. RAMIPRIL [Concomitant]
     Indication: HYPERTENSION
     Route: 065
  5. METOPROLOL [Concomitant]
     Indication: HYPERTENSION
     Route: 065
  6. HYDROCHLOROTHIAZIDE AND IRBESARTAN [Concomitant]
     Indication: HYPERTENSION
     Route: 065
  7. METFORMIN HYDROCHLORIDE AND ROSIGLITAZONE MALEATE [Concomitant]
     Indication: DIABETES MELLITUS
     Route: 065

REACTIONS (11)
  - BLOOD CHOLESTEROL INCREASED [None]
  - BLOOD CREATININE ABNORMAL [None]
  - BLOOD CREATININE INCREASED [None]
  - BLOOD GLUCOSE ABNORMAL [None]
  - BLOOD GLUCOSE INCREASED [None]
  - BLOOD UREA ABNORMAL [None]
  - BLOOD UREA INCREASED [None]
  - CEREBRAL CYST [None]
  - CEREBROVASCULAR ACCIDENT [None]
  - HIGH DENSITY LIPOPROTEIN DECREASED [None]
  - LOW DENSITY LIPOPROTEIN DECREASED [None]
